FAERS Safety Report 25476156 (Version 1)
Quarter: 2025Q2

REPORT INFORMATION
  Report Type: Spontaneous
  Country: SK (occurrence: SK)
  Receive Date: 20250625
  Receipt Date: 20250625
  Transmission Date: 20250716
  Serious: Yes (Other)
  Sender: AMGEN
  Company Number: SK-AMGEN-SVKSP2025119988

PATIENT
  Age: 65 Year
  Sex: Female

DRUGS (1)
  1. PROLIA [Suspect]
     Active Substance: DENOSUMAB
     Indication: Product used for unknown indication
     Route: 065
     Dates: start: 201507

REACTIONS (2)
  - Corneal dystrophy [Unknown]
  - Corneal erosion [Unknown]
